FAERS Safety Report 4735758-5 (Version None)
Quarter: 2005Q3

REPORT INFORMATION
  Report Type: 
  Country: None (occurrence: None)
  Receive Date: 20050805
  Receipt Date: 20050727
  Transmission Date: 20060218
  Serious: Yes (Hospitalization)
  Sender: FDA-Public Use
  Company Number: US-JNJFOC-20050800510

PATIENT
  Sex: Male

DRUGS (2)
  1. TOPAMAX [Suspect]
     Dosage: DOSAGE UNKNOWN
     Route: 065
  2. TOPAMAX [Suspect]
     Indication: DRUG USE FOR UNKNOWN INDICATION
     Dosage: DOSAGE UNKNOWN
     Route: 065

REACTIONS (1)
  - CHOLECYSTITIS INFECTIVE [None]
